FAERS Safety Report 8683835 (Version 4)
Quarter: 2012Q4

REPORT INFORMATION
  Report Type: 
  Country: DK (occurrence: DE)
  Receive Date: 20120726
  Receipt Date: 20120828
  Transmission Date: 20130627
  Serious: Yes (Death)
  Sender: FDA-Public Use
  Company Number: DE-FRI-1000037256

PATIENT
  Age: 29 None
  Sex: Female
  Weight: 94 kg

DRUGS (3)
  1. ESCITALOPRAM [Suspect]
     Indication: PANIC DISORDER
     Dosage: Suspected overdose (260 mg)
     Route: 048
     Dates: start: 20120711, end: 20120711
  2. ESCITALOPRAM [Suspect]
     Dosage: 20 mg
     Route: 048
     Dates: start: 199711, end: 2011
  3. ESCITALOPRAM [Suspect]
     Dosage: 20 mg
     Route: 048

REACTIONS (2)
  - Cardiac death [Fatal]
  - Overdose [Fatal]
